FAERS Safety Report 25763703 (Version 1)
Quarter: 2025Q3

REPORT INFORMATION
  Report Type: Spontaneous
  Country: US (occurrence: US)
  Receive Date: 20250905
  Receipt Date: 20250905
  Transmission Date: 20251020
  Serious: No
  Sender: DOMPE FARMACEUTICI
  Company Number: US-FARMAPROD-202410-3759

PATIENT
  Sex: Female
  Weight: 87.5 kg

DRUGS (16)
  1. OXERVATE [Suspect]
     Active Substance: CENEGERMIN-BKBJ
     Indication: Neurotrophic keratopathy
     Route: 047
     Dates: start: 20211227
  2. OXERVATE [Suspect]
     Active Substance: CENEGERMIN-BKBJ
     Route: 047
     Dates: start: 20240408, end: 20240603
  3. TREMFYA [Concomitant]
     Active Substance: GUSELKUMAB
  4. SERUM TEAR [Concomitant]
  5. PREGABALIN [Concomitant]
     Active Substance: PREGABALIN
  6. VESICARE [Concomitant]
     Active Substance: SOLIFENACIN SUCCINATE
  7. MYRBETRIQ [Concomitant]
     Active Substance: MIRABEGRON
  8. IBUPROFEN [Concomitant]
     Active Substance: IBUPROFEN
  9. TRAZODONE HCL [Concomitant]
     Active Substance: TRAZODONE HYDROCHLORIDE
  10. ACETAMINOPHEN\HYDROCODONE [Concomitant]
     Active Substance: ACETAMINOPHEN\HYDROCODONE
  11. OMEGA-3 ACIDS [Concomitant]
     Active Substance: OMEGA-3 FATTY ACIDS
  12. VITAMINS [Concomitant]
     Active Substance: VITAMINS
  13. MIDODRINE HYDROCHLORIDE [Concomitant]
     Active Substance: MIDODRINE HYDROCHLORIDE
  14. CYMBALTA [Concomitant]
     Active Substance: DULOXETINE HYDROCHLORIDE
  15. ADDERALL [Concomitant]
     Active Substance: AMPHETAMINE ASPARTATE\AMPHETAMINE SULFATE\DEXTROAMPHETAMINE SACCHARATE\DEXTROAMPHETAMINE SULFATE
  16. REXULTI [Concomitant]
     Active Substance: BREXPIPRAZOLE

REACTIONS (3)
  - Eye pain [Unknown]
  - Vision blurred [Unknown]
  - Therapy partial responder [Unknown]
